FAERS Safety Report 16214391 (Version 1)
Quarter: 2019Q2

REPORT INFORMATION
  Report Type: Report from Study
  Country: JP (occurrence: JP)
  Receive Date: 20190418
  Receipt Date: 20190418
  Transmission Date: 20190711
  Serious: Yes (Other)
  Sender: FDA-Public Use
  Company Number: JP-PFIZER INC-2019155909

PATIENT
  Age: 27 Year
  Sex: Female

DRUGS (29)
  1. RIFABUTIN. [Suspect]
     Active Substance: RIFABUTIN
     Dosage: UNK
     Dates: start: 201307, end: 201308
  2. LINEZOLID. [Suspect]
     Active Substance: LINEZOLID
     Indication: TUBERCULOSIS
     Dosage: 1200 MG, DAILY
     Route: 048
     Dates: start: 20180830, end: 20181002
  3. LINEZOLID. [Suspect]
     Active Substance: LINEZOLID
     Dosage: 1200 MG, DAILY
     Route: 048
     Dates: start: 20181016
  4. PAS [Suspect]
     Active Substance: AMINOSALICYLIC ACID
     Indication: PULMONARY TUBERCULOSIS
     Dosage: UNK
     Dates: start: 201305, end: 201411
  5. ETHIONAMIDE [Suspect]
     Active Substance: ETHIONAMIDE
     Dosage: 400 MG, DAILY
     Route: 048
     Dates: start: 20181016
  6. BEDAQUILINE [Suspect]
     Active Substance: BEDAQUILINE
     Indication: TUBERCULOSIS
     Dosage: 400 MG, DAILY
     Route: 048
     Dates: start: 20180830, end: 20181002
  7. ETHAMBUTOL DIHYDROCHLORIDE [Suspect]
     Active Substance: ETHAMBUTOL HYDROCHLORIDE
     Dosage: UNK
     Dates: start: 201308, end: 201411
  8. DELTYBA [Suspect]
     Active Substance: DELAMANID
     Indication: PULMONARY TUBERCULOSIS
     Dosage: 200 MG, DAILY
     Route: 048
     Dates: start: 20180830, end: 20190214
  9. RIFAMPICIN [Suspect]
     Active Substance: RIFAMPIN
     Indication: PULMONARY TUBERCULOSIS
     Dosage: UNK
     Dates: start: 201305, end: 201306
  10. DELTYBA [Suspect]
     Active Substance: DELAMANID
     Dosage: 200 MG, DAILY
     Route: 048
     Dates: start: 20190328
  11. KANAMYCIN [Suspect]
     Active Substance: KANAMYCIN\KANAMYCIN A SULFATE
     Indication: TUBERCULOSIS
     Dosage: 750 MG, DAILY
     Route: 030
     Dates: start: 20180830, end: 20180908
  12. ETHIONAMIDE [Suspect]
     Active Substance: ETHIONAMIDE
     Indication: TUBERCULOSIS
     Dosage: 200 MG, DAILY
     Route: 048
     Dates: start: 20180830
  13. CLARITHROMYCIN. [Suspect]
     Active Substance: CLARITHROMYCIN
     Indication: PULMONARY TUBERCULOSIS
     Dosage: UNK
     Dates: start: 201308, end: 201411
  14. LEVOFLOXACIN. [Suspect]
     Active Substance: LEVOFLOXACIN
     Indication: PULMONARY TUBERCULOSIS
     Dosage: UNK
     Dates: start: 201306, end: 201308
  15. PYRAZINAMIDE. [Suspect]
     Active Substance: PYRAZINAMIDE
     Dosage: 1200 MG, DAILY
     Route: 048
     Dates: start: 20180830
  16. CLOFAZIMINE [Suspect]
     Active Substance: CLOFAZIMINE
     Indication: TUBERCULOSIS
     Dosage: 50 MG, DAILY
     Route: 048
     Dates: start: 20181016
  17. RIFABUTIN. [Suspect]
     Active Substance: RIFABUTIN
     Indication: PULMONARY TUBERCULOSIS
     Dosage: UNK
     Dates: start: 201306, end: 201306
  18. BEDAQUILINE [Suspect]
     Active Substance: BEDAQUILINE
     Dosage: 400 MG, DAILY
     Route: 048
     Dates: start: 20181016
  19. ISONIAZID. [Suspect]
     Active Substance: ISONIAZID
     Indication: PULMONARY TUBERCULOSIS
     Dosage: UNK
     Dates: start: 201305, end: 201411
  20. AMINOSALICYLATE CALCIUM [Concomitant]
     Active Substance: AMINOSALICYLATE CALCIUM
     Dosage: UNK
     Dates: start: 20180831, end: 201809
  21. KANAMYCIN [Suspect]
     Active Substance: KANAMYCIN\KANAMYCIN A SULFATE
     Dosage: 750 MG, DAILY
     Route: 030
     Dates: start: 20181016
  22. PYRAZINAMIDE. [Suspect]
     Active Substance: PYRAZINAMIDE
     Indication: PULMONARY TUBERCULOSIS
     Dosage: UNK
     Route: 048
     Dates: start: 201308, end: 201308
  23. ETHIONAMIDE [Suspect]
     Active Substance: ETHIONAMIDE
     Dosage: 400 MG, DAILY
     Route: 048
     Dates: end: 20181002
  24. AMIKACIN SULFATE. [Suspect]
     Active Substance: AMIKACIN SULFATE
     Indication: PULMONARY TUBERCULOSIS
     Dosage: UNK
     Dates: start: 201305, end: 201411
  25. MOXIFLOXACIN HYDROCHLORIDE. [Suspect]
     Active Substance: MOXIFLOXACIN HYDROCHLORIDE
     Indication: PULMONARY TUBERCULOSIS
     Dosage: UNK
     Dates: start: 201308, end: 201411
  26. ETHAMBUTOL DIHYDROCHLORIDE [Suspect]
     Active Substance: ETHAMBUTOL HYDROCHLORIDE
     Dosage: 750 MG, DAILY
     Route: 048
     Dates: start: 20180830, end: 20181002
  27. PAS [Suspect]
     Active Substance: AMINOSALICYLIC ACID
     Dosage: 10 G, DAILY
     Route: 048
     Dates: start: 20180830, end: 20180908
  28. PYRAZINAMIDE. [Suspect]
     Active Substance: PYRAZINAMIDE
     Dosage: 1200 MG, DAILY
     Route: 048
     Dates: start: 20181016
  29. ETHAMBUTOL DIHYDROCHLORIDE [Suspect]
     Active Substance: ETHAMBUTOL HYDROCHLORIDE
     Indication: PULMONARY TUBERCULOSIS
     Dosage: UNK
     Dates: start: 201305, end: 201306

REACTIONS (4)
  - Vomiting [Recovered/Resolved]
  - Decreased appetite [Unknown]
  - Polyneuropathy [Not Recovered/Not Resolved]
  - Nausea [Recovered/Resolved]

NARRATIVE: CASE EVENT DATE: 201809
